FAERS Safety Report 4746922-3 (Version None)
Quarter: 2005Q3

REPORT INFORMATION
  Report Type: 
  Country: None (occurrence: None)
  Receive Date: 20050817
  Receipt Date: 20050622
  Transmission Date: 20060218
  Serious: Yes (Disabling, Other)
  Sender: FDA-Public Use
  Company Number: PHEH2005US07059

PATIENT
  Age: 63 Year
  Sex: Female
  Weight: 76 kg

DRUGS (12)
  1. ZOMETA [Suspect]
     Indication: METASTASES TO BONE
     Dosage: 4MG Q4WK
     Route: 042
     Dates: start: 20011101, end: 20050501
  2. XELODA [Concomitant]
     Indication: BREAST CANCER METASTATIC
  3. AROMASIN [Concomitant]
     Indication: BREAST CANCER METASTATIC
     Dosage: 25MG QD
     Route: 048
     Dates: start: 20050426
  4. NEURONTIN [Concomitant]
     Indication: NEUROPATHY PERIPHERAL
     Dosage: 300MG TID
     Route: 048
     Dates: start: 20010111
  5. CARDIZEM [Concomitant]
  6. AMITRIPTYLINE HCL [Concomitant]
  7. MULTI-VITAMINS [Concomitant]
  8. WARFARIN [Concomitant]
  9. VITAMIN B6 [Concomitant]
  10. VITAMIN C + E CAPLETS [Concomitant]
  11. CALCIUM GLUCONATE [Concomitant]
  12. TYLENOL (CAPLET) [Concomitant]

REACTIONS (7)
  - ARTHRALGIA [None]
  - ASPIRATION JOINT [None]
  - DIFFICULTY IN WALKING [None]
  - JOINT EFFUSION [None]
  - JOINT SWELLING [None]
  - OSTEONECROSIS [None]
  - WALKING AID USER [None]
